FAERS Safety Report 23725084 (Version 1)
Quarter: 2024Q2

REPORT INFORMATION
  Report Type: Spontaneous
  Country: PL (occurrence: PL)
  Receive Date: 20240410
  Receipt Date: 20240410
  Transmission Date: 20240716
  Serious: Yes (Hospitalization, Other)
  Sender: FDA-Public Use
  Company Number: PL-CELLTRION INC.-2024PL008044

PATIENT

DRUGS (1)
  1. INFLIXIMAB [Suspect]
     Active Substance: INFLIXIMAB
     Indication: Colitis ulcerative
     Dosage: 350 MG
     Route: 042
     Dates: start: 20181116

REACTIONS (10)
  - Bladder disorder [Recovering/Resolving]
  - Feeling hot [Recovering/Resolving]
  - Conjunctival hyperaemia [Recovering/Resolving]
  - Anaphylactic reaction [Recovering/Resolving]
  - Bradycardia [Recovering/Resolving]
  - Circulatory collapse [Recovering/Resolving]
  - Syncope [Recovering/Resolving]
  - Abdominal pain [Recovering/Resolving]
  - Urticaria [Recovering/Resolving]
  - Hyperhidrosis [Recovering/Resolving]

NARRATIVE: CASE EVENT DATE: 20181116
